FAERS Safety Report 7001669-8 (Version None)
Quarter: 2010Q3

REPORT INFORMATION
  Report Type: 
  Country: None (occurrence: None)
  Receive Date: 20100920
  Receipt Date: 20100910
  Transmission Date: 20110219
  Serious: Yes (Other)
  Sender: FDA-Public Use
  Company Number: SE-PFIZER INC-2010114641

PATIENT
  Age: 64 Year
  Sex: Female

DRUGS (1)
  1. TOVIAZ [Suspect]
     Indication: MICTURITION URGENCY
     Dosage: 4 MG, 1X/DAY
     Dates: start: 20100906

REACTIONS (4)
  - CONSTIPATION [None]
  - COUGH [None]
  - FATIGUE [None]
  - HEART RATE INCREASED [None]
